FAERS Safety Report 9177433 (Version 1)
Quarter: 2013Q1

REPORT INFORMATION
  Report Type: Spontaneous
  Country: US (occurrence: US)
  Receive Date: 20130321
  Receipt Date: 20130321
  Transmission Date: 20140127
  Serious: No
  Sender: FDA-Public Use
  Company Number: US-MYLANLABS-2012S1005686

PATIENT
  Age: 54 Year
  Sex: Female

DRUGS (4)
  1. ALBUTEROL SULFATE [Suspect]
     Indication: ASTHMA
     Dosage: Q4 HOURS AS NEEDED
     Route: 055
     Dates: start: 20111108
  2. ALBUTEROL SULFATE [Suspect]
     Indication: WHEEZING
     Dosage: Q4 HOURS AS NEEDED
     Route: 055
     Dates: start: 20111108
  3. SYMBICORT [Concomitant]
     Route: 055
  4. SINGULAR [Concomitant]
     Route: 048

REACTIONS (4)
  - Drug ineffective [Recovered/Resolved]
  - Throat tightness [Recovered/Resolved]
  - Asthma [Unknown]
  - Dyspnoea [Unknown]
